FAERS Safety Report 6657154-6 (Version None)
Quarter: 2010Q1

REPORT INFORMATION
  Report Type: 
  Country: None (occurrence: None)
  Receive Date: 20100326
  Receipt Date: 20100312
  Transmission Date: 20100710
  Serious: Yes (Hospitalization)
  Sender: FDA-Public Use
  Company Number: KV200900666

PATIENT
  Age: 61 Year
  Sex: Female
  Weight: 56 kg

DRUGS (3)
  1. MORPHINE SULFATE [Suspect]
     Indication: MIGRAINE
     Dosage: 15 MG, TID, ORAL
     Route: 048
     Dates: start: 20081101, end: 20081101
  2. AMBIEN CR [Concomitant]
  3. PRILOSEC /00661201/ (OMEPRAZOLE) [Concomitant]

REACTIONS (33)
  - ABDOMINAL DISCOMFORT [None]
  - ABDOMINAL PAIN [None]
  - AGITATION [None]
  - ANXIETY [None]
  - APNOEA [None]
  - BARRETT'S OESOPHAGUS [None]
  - CHEST DISCOMFORT [None]
  - CHEST PAIN [None]
  - COLON ADENOMA [None]
  - COLONIC POLYP [None]
  - CONSTIPATION [None]
  - DEPRESSION [None]
  - DIARRHOEA [None]
  - DRUG DEPENDENCE [None]
  - DRUG INEFFECTIVE FOR UNAPPROVED INDICATION [None]
  - DRUG WITHDRAWAL SYNDROME [None]
  - DUODENITIS [None]
  - DYSPNOEA [None]
  - GASTRITIS [None]
  - GASTROINTESTINAL DISORDER [None]
  - GASTROINTESTINAL TOXICITY [None]
  - HAEMORRHOIDS [None]
  - HOT FLUSH [None]
  - INSOMNIA [None]
  - IRRITABLE BOWEL SYNDROME [None]
  - NAUSEA [None]
  - OVERDOSE [None]
  - PRECANCEROUS CELLS PRESENT [None]
  - RESPIRATORY DEPRESSION [None]
  - RESTLESSNESS [None]
  - STRESS [None]
  - VOMITING [None]
  - WEIGHT DECREASED [None]
